FAERS Safety Report 8225824-4 (Version None)
Quarter: 2012Q1

REPORT INFORMATION
  Report Type: 
  Country: None (occurrence: None)
  Receive Date: 20120321
  Receipt Date: 20120315
  Transmission Date: 20120608
  Serious: Yes (Hospitalization)
  Sender: FDA-Public Use
  Company Number: MX-ABBOTT-12P-107-0915810-00

PATIENT
  Sex: Female
  Weight: 73 kg

DRUGS (1)
  1. HUMIRA [Suspect]
     Indication: RHEUMATOID ARTHRITIS
     Route: 058
     Dates: start: 20100601, end: 20111201

REACTIONS (5)
  - MOBILITY DECREASED [None]
  - AMNESIA [None]
  - HEADACHE [None]
  - SPEECH DISORDER [None]
  - CENTRAL NERVOUS SYSTEM INFECTION [None]
